FAERS Safety Report 7726570-3 (Version None)
Quarter: 2011Q3

REPORT INFORMATION
  Report Type: 
  Country: None (occurrence: None)
  Receive Date: 20110902
  Receipt Date: 20110826
  Transmission Date: 20111222
  Serious: Yes (Other)
  Sender: FDA-Public Use
  Company Number: PHHY2011RO76271

PATIENT
  Sex: Female

DRUGS (3)
  1. LAGOSA [Concomitant]
  2. SANDOSTATIN LAR [Suspect]
     Indication: CARCINOID TUMOUR
     Dosage: 20 MG, QMO
     Dates: start: 20110420
  3. CHEMOTHERAPEUTICS [Concomitant]

REACTIONS (2)
  - DERMATITIS ALLERGIC [None]
  - LARYNGEAL OEDEMA [None]
